FAERS Safety Report 5465326-1 (Version None)
Quarter: 2007Q3

REPORT INFORMATION
  Report Type: 
  Country: None (occurrence: None)
  Receive Date: 20070920
  Receipt Date: 20070920
  Transmission Date: 20080115
  Serious: Yes (Hospitalization)
  Sender: FDA-Public Use
  Company Number: None

PATIENT
  Sex: Female
  Weight: 51.2 kg

DRUGS (5)
  1. DAUNORUBICIN HCL [Suspect]
     Dosage: 86 MG
  2. DEXAMETHASONE 0.5MG TAB [Suspect]
     Dosage: 157.5 MG
  3. METHOTREXATE [Suspect]
     Dosage: 15 MG
  4. PEG-L- ASPARAGINASE [Suspect]
     Dosage: 3750 MILLION IU
  5. VINCRISTINE SULFATE [Suspect]
     Dosage: 4 MG

REACTIONS (7)
  - ABSCESS [None]
  - CELLULITIS [None]
  - MUSCLE ABSCESS [None]
  - MYOSITIS [None]
  - NECROTISING FASCIITIS [None]
  - NEUTROPENIA [None]
  - PSEUDOMONAS INFECTION [None]
